FAERS Safety Report 5998179-3 (Version None)
Quarter: 2008Q4

REPORT INFORMATION
  Report Type: 
  Country: None (occurrence: None)
  Receive Date: 20081213
  Receipt Date: 20080624
  Transmission Date: 20090506
  Serious: No
  Sender: FDA-Public Use
  Company Number: US-AMGEN-KDL289541

PATIENT
  Sex: Female

DRUGS (3)
  1. ENBREL [Suspect]
     Indication: RHEUMATOID ARTHRITIS
     Route: 058
     Dates: start: 20080115
  2. METHOTREXATE [Suspect]
     Dates: start: 20000514, end: 20080201
  3. MOBIC [Concomitant]
     Dates: start: 20080312

REACTIONS (3)
  - EXCORIATION [None]
  - INJURY [None]
  - ORAL HERPES [None]
